FAERS Safety Report 9522848 (Version 1)
Quarter: 2013Q1

REPORT INFORMATION
  Report Type: Spontaneous
  Country: US (occurrence: None)
  Receive Date: 20130305
  Receipt Date: 20130305
  Transmission Date: 20140127
  Serious: Yes (Hospitalization)
  Sender: FDA-Public Use
  Company Number: 163-21880-12032395

PATIENT
  Age: 81 Year
  Sex: Female

DRUGS (19)
  1. REVLIMID [Suspect]
     Indication: PLASMA CELL MYELOMA
     Route: 048
     Dates: start: 200812
  2. JANUVIA (SITAGLIPTIN PHOSPHATE) [Concomitant]
  3. HYDRALAZINE (HYDRALAZINE) [Concomitant]
  4. LASIX (FUROSEMIDE) [Concomitant]
  5. BENZONATATE (BENZONATATE) [Concomitant]
  6. IMDUR (ISOSORBIDE MONONITRATE) [Concomitant]
  7. KLOR-CON (POTASSIUM CHLORIDE) [Concomitant]
  8. NORVASC (AMLODIPINE BESILATE) [Concomitant]
  9. LOPRESSOR (METOPROLOL TARTRATE) [Concomitant]
  10. DECADRON (DEXAMETHASONE) [Concomitant]
  11. BABY ASPIRIN (ACETYLSALICYLIC ACID) [Concomitant]
  12. IRON (IRON) [Concomitant]
  13. PROCRIT [Concomitant]
  14. B12 (CYANOCOBALAMIN) [Concomitant]
  15. NIPEREX (POLYSACCHARIDE-IRON COMPLEX) [Concomitant]
  16. SENOKOT (SENNA FRUIT) [Concomitant]
  17. LANTUS (INSULIN GLARGINE) [Concomitant]
  18. NOVOLOG (INSULIN ASPART) [Concomitant]
  19. ALBUTEROL (SALBUTAMOL) [Concomitant]

REACTIONS (5)
  - Sepsis [None]
  - Clostridium difficile infection [None]
  - Duodenal ulcer haemorrhage [None]
  - Anaemia [None]
  - Pneumonia [None]
